FAERS Safety Report 15752600 (Version 1)
Quarter: 2018Q4

REPORT INFORMATION
  Report Type: Spontaneous
  Country: US (occurrence: US)
  Receive Date: 20181221
  Receipt Date: 20181221
  Transmission Date: 20190205
  Serious: Yes (Death, Other)
  Sender: FDA-Public Use
  Company Number: PHHY2018US190936

PATIENT
  Age: 55 Year
  Sex: Female

DRUGS (2)
  1. TRAMETINIB [Suspect]
     Active Substance: TRAMETINIB
     Indication: METASTATIC MALIGNANT MELANOMA
     Dosage: 2 MG, QD
     Route: 048
  2. DABRAFENIB [Suspect]
     Active Substance: DABRAFENIB
     Indication: METASTATIC MALIGNANT MELANOMA
     Dosage: 150 MG, BID
     Route: 048

REACTIONS (6)
  - Maculopathy [Recovering/Resolving]
  - Retinal disorder [Recovering/Resolving]
  - Metastases to central nervous system [Fatal]
  - Pyrexia [Recovering/Resolving]
  - Vision blurred [Recovering/Resolving]
  - MEK inhibitor-associated serous retinopathy [Recovering/Resolving]
